FAERS Safety Report 5796905-X (Version None)
Quarter: 2008Q2

REPORT INFORMATION
  Report Type: 
  Country: None (occurrence: None)
  Receive Date: 20080618
  Receipt Date: 20070430
  Transmission Date: 20081010
  Serious: Yes (Hospitalization)
  Sender: FDA-Public Use
  Company Number: 2007133343US

PATIENT
  Age: 67 Year
  Sex: Female

DRUGS (9)
  1. LANTUS [Suspect]
     Indication: TYPE 2 DIABETES MELLITUS
     Dosage: 34 U QD
  2. OPTICLIK GREY [Suspect]
     Indication: TYPE 2 DIABETES MELLITUS
  3. LANOXIN [Concomitant]
  4. PARACETAMOL [Concomitant]
  5. ALLOPURINOL [Concomitant]
  6. ATENOLOL [Concomitant]
  7. AMLODIPINE (NORVASC /00972401) [Concomitant]
  8. HUMALOG [Suspect]
  9. METFORMIN HCL [Suspect]

REACTIONS (1)
  - HYPERGLYCAEMIA [None]
